FAERS Safety Report 6298993-3 (Version None)
Quarter: 2009Q3

REPORT INFORMATION
  Report Type: 
  Country: None (occurrence: None)
  Receive Date: 20090806
  Receipt Date: 20090727
  Transmission Date: 20100115
  Serious: Yes (Other)
  Sender: FDA-Public Use
  Company Number: US-CELGENEUS-163-21880-09072205

PATIENT
  Sex: Female

DRUGS (1)
  1. REVLIMID [Suspect]
     Indication: MULTIPLE MYELOMA
     Route: 048
     Dates: start: 20090213, end: 20090101

REACTIONS (3)
  - BASAL CELL CARCINOMA [None]
  - SKIN LESION [None]
  - SQUAMOUS CELL CARCINOMA OF SKIN [None]
